FAERS Safety Report 4347726-6 (Version None)
Quarter: 2004Q2

REPORT INFORMATION
  Report Type: 
  Country: None (occurrence: None)
  Receive Date: 20040422
  Receipt Date: 20040414
  Transmission Date: 20050107
  Serious: Yes (Death)
  Sender: FDA-Public Use
  Company Number: US-JNJFOC-20040305476

PATIENT
  Age: 66 Year
  Sex: Male
  Weight: 49.4421 kg

DRUGS (1)
  1. DURAGESIC [Suspect]
     Indication: PAIN
     Dosage: TRANSDERMAL
     Route: 062
     Dates: start: 20030616, end: 20031202

REACTIONS (6)
  - BILIARY CANCER METASTATIC [None]
  - DISEASE PROGRESSION [None]
  - METASTASES TO ABDOMINAL WALL [None]
  - METASTASES TO BONE [None]
  - NON-SMALL CELL LUNG CANCER METASTATIC [None]
  - PANCREATIC CARCINOMA METASTATIC [None]
